FAERS Safety Report 17946674 (Version 4)
Quarter: 2020Q3

REPORT INFORMATION
  Report Type: Spontaneous
  Country: DE (occurrence: DE)
  Receive Date: 20200625
  Receipt Date: 20200731
  Transmission Date: 20201103
  Serious: Yes (Life-Threatening, Hospitalization)
  Sender: FDA-Public Use
  Company Number: NVSC2020DE173729

PATIENT
  Age: 64 Year
  Sex: Female
  Weight: 105 kg

DRUGS (24)
  1. CARBOPLATIN. [Suspect]
     Active Substance: CARBOPLATIN
     Dosage: 258.18 MG
     Route: 065
     Dates: start: 20200401
  2. TRASTUZUMAB. [Suspect]
     Active Substance: TRASTUZUMAB
     Indication: BREAST CANCER
     Dosage: LAT DOSE RECEIVED BEFORE SAE ON 25/MAR/2020 (702 MG), 22?APR?2020
     Route: 042
     Dates: start: 20200122
  3. TAXOL [Suspect]
     Active Substance: PACLITAXEL
     Indication: BREAST CANCER
     Dosage: 193 MG
     Route: 042
     Dates: start: 20200122
  4. METOPROLOL. [Concomitant]
     Active Substance: METOPROLOL
     Dosage: UNK
     Route: 065
     Dates: start: 20200505
  5. PACLITAXEL. [Suspect]
     Active Substance: PACLITAXEL
     Indication: BREAST CANCER
     Dosage: LAST DOSE RECEIVED BEFORE SAE ON 01/APR/2020 (193 MG)
     Route: 065
     Dates: start: 20200122
  6. PACLITAXEL. [Suspect]
     Active Substance: PACLITAXEL
     Dosage: 193 MG
     Route: 065
     Dates: start: 20200401
  7. ATEZOLIZUMAB. [Suspect]
     Active Substance: ATEZOLIZUMAB
     Dosage: UNK
     Route: 042
     Dates: start: 20200422
  8. TRASTUZUMAB. [Suspect]
     Active Substance: TRASTUZUMAB
     Dosage: 702 MG
     Route: 042
     Dates: start: 20200325
  9. METOPROLOL. [Concomitant]
     Active Substance: METOPROLOL
     Indication: HYPERTENSION
     Dosage: UNK
     Route: 065
     Dates: start: 19850101, end: 20200418
  10. ATEZOLIZUMAB. [Suspect]
     Active Substance: ATEZOLIZUMAB
     Indication: BREAST CANCER
     Dosage: 1200 MG (LAST DOSE RECEIVED BEFOR SAE ON 25/MAR/2020, 22?APR?2020)
     Route: 042
     Dates: start: 20200122
  11. TORASEMID [Concomitant]
     Active Substance: TORSEMIDE
     Indication: HYPERTENSION
     Dosage: UNK
     Route: 065
     Dates: start: 19850101, end: 20200417
  12. IRBESARTAN. [Concomitant]
     Active Substance: IRBESARTAN
     Indication: HYPERTENSION
     Dosage: UNK
     Route: 065
     Dates: start: 19850101, end: 20200417
  13. CARBOPLATIN. [Suspect]
     Active Substance: CARBOPLATIN
     Dosage: LAST DOSE RECEIVED BEFORE SAE ON 01/APR/2020 (TOTAL DOSE 258.18 MG)
     Route: 065
     Dates: start: 20200325
  14. PACLITAXEL. [Suspect]
     Active Substance: PACLITAXEL
     Dosage: LAST DOSE RECEIVED BEFORE SAE ON 01/APR/2020 (TOTAL DOSE 193.50 MG), 29?APR?2020
     Route: 065
     Dates: start: 20200325
  15. CARBOPLATIN. [Suspect]
     Active Substance: CARBOPLATIN
     Dosage: UNK
     Route: 065
     Dates: start: 20200429
  16. PACLITAXEL. [Suspect]
     Active Substance: PACLITAXEL
     Dosage: UNK
     Route: 065
     Dates: start: 20200429
  17. AMLODIPIN [Concomitant]
     Active Substance: AMLODIPINE BESYLATE
     Indication: HYPERTENSION
     Dosage: UNK
     Route: 065
     Dates: start: 19850101, end: 20200417
  18. ATEZOLIZUMAB. [Suspect]
     Active Substance: ATEZOLIZUMAB
     Dosage: UNK
     Route: 042
     Dates: start: 20200325
  19. PERTUZUMAB. [Suspect]
     Active Substance: PERTUZUMAB
     Indication: BREAST CANCER
     Dosage: LAST DOSE RECEIVED BEFORE SAE ON 25/MAR/2020 (TOTAL DOSE 420 MG), 22?APR?2020
     Route: 065
     Dates: start: 20200122
  20. CALCIUM [Concomitant]
     Active Substance: CALCIUM
     Indication: HYPOCALCAEMIA
     Dosage: UNK
     Route: 065
     Dates: start: 20200416
  21. CARBOPLATIN. [Suspect]
     Active Substance: CARBOPLATIN
     Indication: BREAST CANCER
     Dosage: LAST DOSE RECEIVED BEFORE SAE ON 01/APR/2020 (TOTAL DOSE 294,72 MG), 29?APR?2020
     Route: 065
     Dates: start: 20200122
  22. PERTUZUMAB. [Suspect]
     Active Substance: PERTUZUMAB
     Dosage: LAST DOSE RECEIVED BEFORE SAE ON 25/MAR/2020 (TOTAL DOSE 420 MG)
     Route: 065
     Dates: start: 20200325
  23. PERTUZUMAB. [Suspect]
     Active Substance: PERTUZUMAB
     Dosage: UNK
     Route: 065
     Dates: start: 20200422
  24. TRASTUZUMAB. [Suspect]
     Active Substance: TRASTUZUMAB
     Dosage: UNK
     Route: 042
     Dates: start: 20200422

REACTIONS (7)
  - Hypotension [Recovered/Resolved]
  - General physical health deterioration [Not Recovered/Not Resolved]
  - Cardiovascular disorder [Recovered/Resolved]
  - Anaemia [Recovered/Resolved]
  - Decreased appetite [Recovered/Resolved]
  - Gastrointestinal disorder [Not Recovered/Not Resolved]
  - Diarrhoea [Recovered/Resolved]

NARRATIVE: CASE EVENT DATE: 20200409
